FAERS Safety Report 8179110-1 (Version None)
Quarter: 2012Q1

REPORT INFORMATION
  Report Type: 
  Country: None (occurrence: None)
  Receive Date: 20120302
  Receipt Date: 20120221
  Transmission Date: 20120608
  Serious: Yes (Hospitalization)
  Sender: FDA-Public Use
  Company Number: US-BAYER-2012-018527

PATIENT
  Age: 50 Year
  Sex: Female

DRUGS (11)
  1. CIPROFLOXACIN [Concomitant]
     Indication: SEPSIS
  2. FLUCONAZOLE [Concomitant]
     Indication: COLITIS
  3. PIPERACILLIN AND TAZOBACTAM [Concomitant]
     Indication: COLITIS
  4. CEFTRIAXONE [Concomitant]
     Indication: COLITIS
  5. LANSOPRAZOLE [Concomitant]
     Dosage: UNK UNK, BIW
  6. METHYLPREDNISOLONE [Concomitant]
     Indication: SEPSIS
  7. METRONIDAZOLE HYDROCHLORIDE [Concomitant]
     Indication: COLITIS
  8. CIPROFLOXACIN [Concomitant]
     Indication: COLITIS
  9. ETANERCEPT [Suspect]
     Indication: RHEUMATOID ARTHRITIS
  10. CLIMARA [Suspect]
     Route: 062
  11. DEXAMETHASONE [Concomitant]
     Indication: COLITIS

REACTIONS (24)
  - MENTAL IMPAIRMENT [None]
  - DIARRHOEA [None]
  - SEPSIS [None]
  - PLEURAL EFFUSION [None]
  - MEMORY IMPAIRMENT [None]
  - NEUROLOGICAL DECOMPENSATION [None]
  - HAEMORRHAGIC CEREBRAL INFARCTION [None]
  - HAEMATOCHEZIA [None]
  - HAEMOLYTIC URAEMIC SYNDROME [None]
  - RENAL FAILURE ACUTE [None]
  - CONTINUOUS HAEMODIAFILTRATION [None]
  - BRAIN INJURY [None]
  - NEUROLOGICAL SYMPTOM [None]
  - RESPIRATORY DISORDER [None]
  - UNRESPONSIVE TO STIMULI [None]
  - RENAL FAILURE [None]
  - CONVULSION [None]
  - THROMBOTIC MICROANGIOPATHY [None]
  - COMPLEMENT FACTOR DECREASED [None]
  - ASPARTATE AMINOTRANSFERASE INCREASED [None]
  - COGNITIVE DISORDER [None]
  - MULTI-ORGAN FAILURE [None]
  - THROMBOCYTOPENIA [None]
  - COLITIS ISCHAEMIC [None]
